FAERS Safety Report 8323034-3 (Version None)
Quarter: 2012Q2

REPORT INFORMATION
  Report Type: 
  Country: None (occurrence: None)
  Receive Date: 20120430
  Receipt Date: 20120425
  Transmission Date: 20120825
  Serious: No
  Sender: FDA-Public Use
  Company Number: US-PFIZER INC-2012103656

PATIENT
  Sex: Male
  Weight: 118 kg

DRUGS (5)
  1. VIAGRA [Concomitant]
     Indication: LIBIDO DISORDER
     Dosage: UNK
  2. ACCUPRIL [Suspect]
     Indication: DIABETES MELLITUS
     Dosage: 10 MG, DAILY
     Route: 048
     Dates: start: 20080101
  3. LIPITOR [Concomitant]
     Indication: BLOOD CHOLESTEROL INCREASED
     Dosage: 5 MG, DAILY
  4. METFORMIN [Concomitant]
     Indication: DIABETES MELLITUS
     Dosage: 1000 MG, 2X/DAY
  5. LISINOPRIL AND HYDROCHLOROTHIAZIDE [Concomitant]
     Indication: HYPERTENSION
     Dosage: 10/25MG, DAILY

REACTIONS (2)
  - INCORRECT DOSE ADMINISTERED [None]
  - BACK PAIN [None]
